FAERS Safety Report 18644119 (Version 2)
Quarter: 2021Q3

REPORT INFORMATION
  Report Type: Report from Study
  Country: DE (occurrence: DE)
  Receive Date: 20201221
  Receipt Date: 20210922
  Transmission Date: 20211014
  Serious: Yes (Hospitalization)
  Sender: FDA-Public Use
  Company Number: DE-MYLANLABS-2020M1104402

PATIENT
  Age: 57 Year
  Sex: Male
  Weight: 71 kg

DRUGS (11)
  1. TRASTUZUMAB. [Concomitant]
     Active Substance: TRASTUZUMAB
     Dosage: 445 MILLIGRAM, Q3W (MAINTENANCE DOSE)
     Route: 042
  2. TEPILTA                            /01450201/ [Concomitant]
     Indication: DYSPHAGIA
     Dosage: 10 MILLILITER
     Route: 048
     Dates: start: 20141030
  3. OMEPRAZOL                          /00661201/ [Concomitant]
     Active Substance: OMEPRAZOLE
     Indication: GASTROOESOPHAGEAL REFLUX DISEASE
     Dosage: 40 MILLIGRAM
     Route: 048
     Dates: start: 201310
  4. CAPECITABINE. [Suspect]
     Active Substance: CAPECITABINE
     Dosage: 1800 MILLIGRAM, BID (0.5 DAY)
     Route: 048
     Dates: start: 20140507
  5. CISPLATIN. [Suspect]
     Active Substance: CISPLATIN
     Indication: HER2 POSITIVE GASTRIC CANCER
     Dosage: 150 MILLIGRAM, Q3W
     Route: 042
     Dates: start: 20140507
  6. UREA. [Concomitant]
     Active Substance: UREA
     Indication: PALMAR-PLANTAR ERYTHRODYSAESTHESIA SYNDROME
     Dosage: 1 GRAM
     Route: 062
     Dates: start: 20140618, end: 20141112
  7. CAPECITABINE. [Suspect]
     Active Substance: CAPECITABINE
     Indication: HER2 POSITIVE GASTRIC CANCER
     Dosage: UNK (DOSE REDUCED)
     Route: 048
  8. TRASTUZUMAB. [Concomitant]
     Active Substance: TRASTUZUMAB
     Indication: HER2 POSITIVE GASTRIC CANCER
     Dosage: 8 MILLIGRAM/KILOGRAM, Q3W (LOADING DOSE)
     Route: 042
     Dates: start: 20140507
  9. NOVAMINSULFON [Concomitant]
     Active Substance: METAMIZOLE
     Indication: BONE CONTUSION
     Dosage: 30 GTT DROPS
     Route: 048
     Dates: start: 20141015
  10. HEMP [Concomitant]
     Active Substance: HEMP
     Indication: PALMAR-PLANTAR ERYTHRODYSAESTHESIA SYNDROME
     Dosage: 1 MILLILITER
     Route: 062
     Dates: start: 20140618, end: 20141112
  11. DICLOFENAC [Concomitant]
     Active Substance: DICLOFENAC
     Indication: BONE CONTUSION
     Dosage: 10 GRAM
     Route: 062
     Dates: start: 20141008, end: 20141122

REACTIONS (2)
  - Diarrhoea [Recovered/Resolved]
  - Subclavian vein thrombosis [Recovered/Resolved]

NARRATIVE: CASE EVENT DATE: 20140705
